FAERS Safety Report 8756759 (Version 3)
Quarter: 2012Q4

REPORT INFORMATION
  Report Type: 
  Country: US (occurrence: US)
  Receive Date: 20120828
  Receipt Date: 20121207
  Transmission Date: 20130627
  Serious: Yes (Other)
  Sender: FDA-Public Use
  Company Number: US-INCYTE CORPORATION-2012IN001590

PATIENT
  Age: 81 None
  Sex: Female
  Weight: 51.7 kg

DRUGS (8)
  1. JAKAFI [Suspect]
     Indication: MYELOFIBROSIS
     Dosage: 20 mg, qd
     Route: 048
     Dates: start: 201201, end: 2012
  2. JAKAFI [Suspect]
     Dosage: Not specified
     Route: 048
     Dates: start: 2012
  3. LISINOPRIL [Concomitant]
  4. FUROSEMIDE [Concomitant]
  5. POTASSIUM [Concomitant]
     Indication: SUPPLEMENTATION THERAPY
  6. ASPIRIN [Concomitant]
     Dosage: 81 mg, UNK
  7. METOPROLOL [Concomitant]
  8. MULTIVITAMIN [Concomitant]

REACTIONS (3)
  - Radicular pain [Recovered/Resolved]
  - Anaemia [Recovering/Resolving]
  - Contusion [Recovered/Resolved]
